FAERS Safety Report 24968123 (Version 2)
Quarter: 2025Q1

REPORT INFORMATION
  Report Type: Spontaneous
  Country: US (occurrence: US)
  Receive Date: 20250214
  Receipt Date: 20250218
  Transmission Date: 20250409
  Serious: Yes (Other)
  Sender: NOVARTIS
  Company Number: US-SANDOZ-SDZ2025US007881

PATIENT
  Sex: Female
  Weight: 57.2 kg

DRUGS (20)
  1. AMOXICILLIN [Suspect]
     Active Substance: AMOXICILLIN
     Indication: Product used for unknown indication
     Route: 065
  2. ZOMETA [Suspect]
     Active Substance: ZOLEDRONIC ACID
     Indication: Product used for unknown indication
     Route: 065
  3. PERCOCET [Suspect]
     Active Substance: ACETAMINOPHEN\OXYCODONE HYDROCHLORIDE
     Indication: Product used for unknown indication
     Route: 065
  4. ELIQUIS [Concomitant]
     Active Substance: APIXABAN
     Indication: Product used for unknown indication
     Dosage: 2 DF, QD TAKE 2 TABLETS (10 MG TOTAL) BY MOUTH IN THE MORNING AND 2 TABLETS (10 MG TOTAL) BEFORE BED
     Route: 048
  5. ELIQUIS [Concomitant]
     Active Substance: APIXABAN
     Route: 048
     Dates: start: 20250121
  6. CLINDAGEL [Concomitant]
     Active Substance: CLINDAMYCIN PHOSPHATE
     Indication: Product used for unknown indication
     Route: 065
  7. CLINDAGEL [Concomitant]
     Active Substance: CLINDAMYCIN PHOSPHATE
     Route: 065
  8. ADOXA [Concomitant]
     Active Substance: DOXYCYCLINE
     Indication: Product used for unknown indication
     Route: 048
  9. FLUOCINONIDE [Concomitant]
     Active Substance: FLUOCINONIDE
     Indication: Product used for unknown indication
     Route: 050
  10. LASIX [Concomitant]
     Active Substance: FUROSEMIDE
     Indication: Swelling
     Dosage: 1 DOSAGE FORM, QD (1 DF, QD TAKE 1 TABLET (20 MG TOTAL) BY MOUTH DAILY AS NEEDED (SWELLING). FOR DIA
     Route: 048
  11. LASIX [Concomitant]
     Active Substance: FUROSEMIDE
     Indication: Oedema peripheral
  12. LIDODERM [Concomitant]
     Active Substance: LIDOCAINE
     Indication: Musculoskeletal pain
     Dosage: 1 DOSAGE FORM, QD (1 DF, QD PLACE 1 PATCH ON THE SKIN DAILY. PATCH(ES) MAY REMAIN IN  PLACE FOR UP T
     Route: 065
  13. EMLA [Concomitant]
     Active Substance: LIDOCAINE\PRILOCAINE
     Indication: Pain
     Route: 050
  14. VITAMINS [Concomitant]
     Active Substance: VITAMINS
     Indication: Product used for unknown indication
     Route: 048
  15. ZOFRAN [Concomitant]
     Active Substance: ONDANSETRON HYDROCHLORIDE
     Indication: Product used for unknown indication
     Dosage: 1 DOSAGE FORM, Q8H (TAKE 1 TABLET (8 MG TOTAL) BY MOUTH EVERY 8 (EIGHT)  HOURS AS NEEDED)
     Route: 048
  16. TAGRISSO [Concomitant]
     Active Substance: OSIMERTINIB
     Indication: Lung adenocarcinoma
     Dosage: 1 DOSAGE FORM, QD (TAKE 1 TABLET BY MOUTH DAILY TAKE 80 MG ON DAYS 1-28  OF CHEMO CYCLE  QUANTITY: 2
     Route: 048
  17. ZOLOFT [Concomitant]
     Active Substance: SERTRALINE HYDROCHLORIDE
     Indication: Anxiety
     Dosage: 1 DOSAGE FORM, QD (TAKE 1 TABLET(S0 MG) BY MOUTH DAILY  QUANTITY: 30 TABLET)
     Route: 048
  18. ALDACTONE [Concomitant]
     Active Substance: SPIRONOLACTONE
     Indication: Product used for unknown indication
     Route: 048
  19. ULTRAM [Concomitant]
     Active Substance: TRAMADOL HYDROCHLORIDE
     Indication: Lung adenocarcinoma
     Dosage: 1 DOSAGE FORM, Q8H (TAKE 1 TABLET (SO MG TOTAL) BY MOUTH EVERY 8 (EIGHT)  HOURS AS NEEDED FOR PAIN F
     Route: 048
  20. ULTRAM [Concomitant]
     Active Substance: TRAMADOL HYDROCHLORIDE
     Indication: Pain

REACTIONS (1)
  - Hypersensitivity [Unknown]
